FAERS Safety Report 8206337-2 (Version None)
Quarter: 2012Q1

REPORT INFORMATION
  Report Type: 
  Country: None (occurrence: None)
  Receive Date: 20120313
  Receipt Date: 20120306
  Transmission Date: 20120608
  Serious: Yes (Hospitalization, Other)
  Sender: FDA-Public Use
  Company Number: US-ROCHE-752071

PATIENT
  Sex: Male
  Weight: 59 kg

DRUGS (3)
  1. ACCUTANE [Suspect]
     Indication: ACNE
     Dosage: INCERESED DOSE 100 MG QD FOR FINAL WEEKS
     Route: 065
     Dates: start: 19981109, end: 19990420
  2. ACCUTANE [Suspect]
     Route: 065
  3. AMPICILLIN [Concomitant]

REACTIONS (9)
  - COLITIS ULCERATIVE [None]
  - IRRITABLE BOWEL SYNDROME [None]
  - ACNE [None]
  - DEPRESSION [None]
  - XEROSIS [None]
  - ACNE CYSTIC [None]
  - INFLAMMATORY BOWEL DISEASE [None]
  - ANXIETY [None]
  - ANKYLOSING SPONDYLITIS [None]
